FAERS Safety Report 8876002 (Version 2)
Quarter: 2012Q4

REPORT INFORMATION
  Report Type: 
  Country: US (occurrence: US)
  Receive Date: 20121030
  Receipt Date: 20121116
  Transmission Date: 20130627
  Serious: Yes (Other)
  Sender: FDA-Public Use
  Company Number: US-COVIDIEN/TYCO HEALTHCARE/MALLINCKRODT-T201203720

PATIENT
  Age: 79 Year
  Sex: Male

DRUGS (4)
  1. OPTIRAY [Suspect]
     Indication: ANGIOGRAM
     Dosage: 33 ml, single
     Route: 042
     Dates: start: 20121011, end: 20121011
  2. VERSED [Concomitant]
     Dosage: UNK
  3. FENTANYL [Concomitant]
  4. PREDNISONE [Concomitant]
     Indication: PREMEDICATION
     Dosage: 40 mg, 3 doses
     Route: 048
     Dates: start: 20121010

REACTIONS (1)
  - Anaphylactic reaction [Recovered/Resolved]
